FAERS Safety Report 5934775-7 (Version None)
Quarter: 2008Q4

REPORT INFORMATION
  Report Type: 
  Country: None (occurrence: None)
  Receive Date: 20081029
  Receipt Date: 20081021
  Transmission Date: 20090506
  Serious: Yes (Hospitalization)
  Sender: FDA-Public Use
  Company Number: FR-ASTRAZENECA-2008CG01542

PATIENT
  Age: 78 Year
  Sex: Female

DRUGS (5)
  1. CRESTOR [Suspect]
     Route: 048
     Dates: start: 20080404, end: 20080601
  2. LEVOTHYROX [Concomitant]
  3. TAREG [Concomitant]
     Indication: HYPERTENSION
  4. PIASCLEDINE [Concomitant]
  5. RABEPRAZOLE SODIUM [Concomitant]

REACTIONS (1)
  - HEPATITIS CHOLESTATIC [None]
